FAERS Safety Report 7861709-0 (Version None)
Quarter: 2011Q4

REPORT INFORMATION
  Report Type: 
  Country: None (occurrence: None)
  Receive Date: 20111026
  Receipt Date: 20111019
  Transmission Date: 20120403
  Serious: Yes (Other)
  Sender: FDA-Public Use
  Company Number: DSA_47531_2011

PATIENT
  Sex: Male

DRUGS (9)
  1. DONEPEZIL HCL [Concomitant]
  2. XENAZINE [Suspect]
     Indication: HUNTINGTON'S DISEASE
     Dosage: (25 MG BID ORAL), (12.5 MG BID ORAL), (12.5 MG TID ORAL), (12.5 MG QD ORAL), (12.5 MG QD ORAL)
     Route: 048
     Dates: start: 20110101, end: 20110101
  3. XENAZINE [Suspect]
     Indication: HUNTINGTON'S DISEASE
     Dosage: (25 MG BID ORAL), (12.5 MG BID ORAL), (12.5 MG TID ORAL), (12.5 MG QD ORAL), (12.5 MG QD ORAL)
     Route: 048
     Dates: start: 20110101
  4. XENAZINE [Suspect]
     Indication: HUNTINGTON'S DISEASE
     Dosage: (25 MG BID ORAL), (12.5 MG BID ORAL), (12.5 MG TID ORAL), (12.5 MG QD ORAL), (12.5 MG QD ORAL)
     Route: 048
     Dates: start: 20110101, end: 20110101
  5. XENAZINE [Suspect]
     Indication: HUNTINGTON'S DISEASE
     Dosage: (25 MG BID ORAL), (12.5 MG BID ORAL), (12.5 MG TID ORAL), (12.5 MG QD ORAL), (12.5 MG QD ORAL)
     Route: 048
     Dates: start: 20110303, end: 20110101
  6. XENAZINE [Suspect]
     Indication: HUNTINGTON'S DISEASE
     Dosage: (25 MG BID ORAL), (12.5 MG BID ORAL), (12.5 MG TID ORAL), (12.5 MG QD ORAL), (12.5 MG QD ORAL)
     Route: 048
     Dates: start: 20110527, end: 20110101
  7. CALCIUM [Concomitant]
  8. MULTI-VITAMIN [Concomitant]
  9. CLONAZEPAM [Concomitant]

REACTIONS (11)
  - SOMNOLENCE [None]
  - DIZZINESS [None]
  - CRYING [None]
  - NO THERAPEUTIC RESPONSE [None]
  - FALL [None]
  - ANGER [None]
  - LOSS OF CONSCIOUSNESS [None]
  - LABYRINTHITIS [None]
  - DEPRESSION [None]
  - SYNCOPE [None]
  - AFFECTIVE DISORDER [None]
